FAERS Safety Report 20303588 (Version 4)
Quarter: 2022Q1

REPORT INFORMATION
  Report Type: Report from Study
  Country: FR (occurrence: FR)
  Receive Date: 20220106
  Receipt Date: 20220215
  Transmission Date: 20220424
  Serious: Yes (Other)
  Sender: FDA-Public Use
  Company Number: FR-KYOWAKIRIN-2021BKK022012

PATIENT

DRUGS (4)
  1. BUROSUMAB [Suspect]
     Active Substance: BUROSUMAB
     Indication: Hereditary hypophosphataemic rickets
     Dosage: 10.3 MG, EVERY 14 DAYS
     Route: 058
     Dates: start: 20211210, end: 202112
  2. BUROSUMAB [Suspect]
     Active Substance: BUROSUMAB
     Dosage: 1.6 MG/KG, EVERY 14 DAYS
     Route: 058
     Dates: start: 20211223
  3. BUROSUMAB [Suspect]
     Active Substance: BUROSUMAB
     Dosage: 1.2 MG/KG, EVERY 14 DAYS
     Route: 058
     Dates: start: 20210903, end: 2021
  4. BUROSUMAB [Suspect]
     Active Substance: BUROSUMAB
     Dosage: 0.8 MG/KG, EVERY 14 DAYS
     Route: 058
     Dates: start: 20210319, end: 2021

REACTIONS (1)
  - Craniosynostosis [Not Recovered/Not Resolved]

NARRATIVE: CASE EVENT DATE: 20211221
